FAERS Safety Report 9003728 (Version 1)
Quarter: 2013Q1

REPORT INFORMATION
  Report Type: Spontaneous
  Country: US (occurrence: US)
  Receive Date: 20130108
  Receipt Date: 20130108
  Transmission Date: 20140127
  Serious: No
  Sender: FDA-Public Use
  Company Number: US-GLAXOSMITHKLINE-A0968822A

PATIENT
  Age: 56 Year
  Sex: Male

DRUGS (2)
  1. LOVAZA [Suspect]
     Indication: BLOOD TRIGLYCERIDES INCREASED
     Dosage: 4CAP PER DAY
     Route: 048
     Dates: start: 20120215
  2. BLOOD PRESSURE MEDICINES [Concomitant]

REACTIONS (3)
  - Local swelling [Unknown]
  - Pain in extremity [Unknown]
  - Gout [Unknown]
